FAERS Safety Report 25577160 (Version 1)
Quarter: 2025Q3

REPORT INFORMATION
  Report Type: Spontaneous
  Country: GB (occurrence: GB)
  Receive Date: 20250718
  Receipt Date: 20250718
  Transmission Date: 20251020
  Serious: Yes (Death, Other)
  Sender: BEIGENE
  Company Number: GB-BEIGENE-BGN-2025-011664

PATIENT
  Age: 59 Year

DRUGS (3)
  1. BRUKINSA [Suspect]
     Active Substance: ZANUBRUTINIB
     Indication: Lymphoplasmacytoid lymphoma/immunocytoma
  2. VELCADE [Concomitant]
     Active Substance: BORTEZOMIB
     Indication: Lymphoplasmacytoid lymphoma/immunocytoma
  3. RITUXIMAB [Concomitant]
     Active Substance: RITUXIMAB
     Indication: Lymphoplasmacytoid lymphoma/immunocytoma

REACTIONS (5)
  - Death [Fatal]
  - Disease progression [Unknown]
  - Hepatic failure [Unknown]
  - Respiratory failure [Unknown]
  - COVID-19 [Unknown]
